FAERS Safety Report 10121023 (Version 1)
Quarter: 2014Q2

REPORT INFORMATION
  Report Type: Spontaneous
  Country: AT (occurrence: AT)
  Receive Date: 20140425
  Receipt Date: 20140425
  Transmission Date: 20141212
  Serious: Yes (Other)
  Sender: FDA-Public Use
  Company Number: PHHY2014AT050303

PATIENT
  Sex: Female

DRUGS (2)
  1. GILENYA [Suspect]
     Route: 048
  2. FAMPYRA [Suspect]

REACTIONS (1)
  - Epilepsy [Unknown]
